FAERS Safety Report 8924576 (Version 2)
Quarter: 2013Q2

REPORT INFORMATION
  Report Type: Report from Study
  Country: JP (occurrence: JP)
  Receive Date: 20121126
  Receipt Date: 20130624
  Transmission Date: 20140414
  Serious: No
  Sender: FDA-Public Use
  Company Number: JP-VERTEX PHARMACEUTICAL INC.-2012-025065

PATIENT
  Age: 66 Year
  Sex: Female

DRUGS (5)
  1. VX-950 (TELAPREVIR) [Suspect]
     Indication: CHRONIC HEPATITIS C
     Dosage: 1500 MG, QD
     Route: 048
     Dates: start: 20120907, end: 20121009
  2. RIBAVIRIN [Suspect]
     Indication: CHRONIC HEPATITIS C
     Dosage: 400 MG, QD
     Route: 048
     Dates: start: 20120907, end: 20120930
  3. RIBAVIRIN [Suspect]
     Dosage: 200 MG, QD
     Route: 048
     Dates: start: 20121001
  4. PEGINTERFERON ALFA-2B [Concomitant]
     Dosage: 80 ?G, QW
     Route: 058
     Dates: start: 20120907
  5. URSO [Concomitant]
     Dosage: 400 MG, QD
     Route: 048

REACTIONS (1)
  - Hyperventilation [Recovered/Resolved]
